FAERS Safety Report 5575275-6 (Version None)
Quarter: 2007Q4

REPORT INFORMATION
  Report Type: 
  Country: None (occurrence: None)
  Receive Date: 20071227
  Receipt Date: 20071218
  Transmission Date: 20080405
  Serious: Yes (Hospitalization, Other)
  Sender: FDA-Public Use
  Company Number: US-ELI_LILLY_AND_COMPANY-USA030125488

PATIENT
  Sex: Male
  Weight: 44.091 kg

DRUGS (12)
  1. FORTEO [Suspect]
     Indication: HIP FRACTURE
     Dosage: 20 UG, DAILY (1/D)
     Dates: start: 20021228
  2. FORTEO [Suspect]
     Dosage: 40 UG, DAILY (1/D)
     Route: 058
     Dates: start: 20030101, end: 20030127
  3. FORTEO [Suspect]
     Dosage: 20 UG, DAILY (1/D)
     Dates: start: 20030128, end: 20040301
  4. FORTEO [Suspect]
     Dosage: 40 UG, DAILY (1/D)
     Dates: start: 20040301, end: 20070515
  5. ACTONEL [Concomitant]
     Dosage: UNK, UNKNOWN
  6. COLACE [Concomitant]
     Dosage: UNK, UNKNOWN
  7. VITAMIN K [Concomitant]
     Dosage: 600 UG, DAILY (1/D)
  8. COD-LIVER OIL [Concomitant]
     Dosage: UNK, UNKNOWN
  9. CALCIUM [Concomitant]
     Dosage: UNK, UNKNOWN
  10. VITAMIN E [Concomitant]
     Dosage: UNK, UNKNOWN
  11. FISH OIL [Concomitant]
     Dosage: UNK, UNKNOWN
  12. MANGANESE [Concomitant]
     Dosage: UNK, UNKNOWN

REACTIONS (26)
  - ASTHENIA [None]
  - BLOOD PARATHYROID HORMONE INCREASED [None]
  - BLOOD PHOSPHORUS INCREASED [None]
  - BONE DENSITY DECREASED [None]
  - BONE PAIN [None]
  - CONSTIPATION [None]
  - DECREASED APPETITE [None]
  - DIZZINESS [None]
  - DRUG INEFFECTIVE [None]
  - FATIGUE [None]
  - GOUT [None]
  - HUNGER [None]
  - IMPAIRED HEALING [None]
  - INJECTION SITE HAEMORRHAGE [None]
  - INTENTIONAL OVERDOSE [None]
  - LABORATORY TEST ABNORMAL [None]
  - MALAISE [None]
  - METABOLIC DISORDER [None]
  - MUSCLE SPASMS [None]
  - MUSCULOSKELETAL STIFFNESS [None]
  - MYALGIA [None]
  - POLYDIPSIA [None]
  - SOMNOLENCE [None]
  - TREMOR [None]
  - URINE PHOSPHATE INCREASED [None]
  - VITAMIN D INCREASED [None]
